FAERS Safety Report 9189965 (Version 2)
Quarter: 2013Q2

REPORT INFORMATION
  Report Type: Spontaneous
  Country: US (occurrence: US)
  Receive Date: 20130326
  Receipt Date: 20130521
  Transmission Date: 20140414
  Serious: No
  Sender: FDA-Public Use
  Company Number: US-PFIZER INC-2013096281

PATIENT
  Age: 39 Year
  Sex: Female
  Weight: 56.69 kg

DRUGS (1)
  1. ADVIL PM [Suspect]
     Indication: PAIN
     Dosage: 200/38MG, TWICE A DAY
     Route: 048
     Dates: start: 201303

REACTIONS (3)
  - Drug ineffective [Unknown]
  - Somnolence [Unknown]
  - Sneezing [Not Recovered/Not Resolved]
